FAERS Safety Report 5048545-8 (Version None)
Quarter: 2006Q3

REPORT INFORMATION
  Report Type: 
  Country: None (occurrence: None)
  Receive Date: 20060705
  Receipt Date: 20060616
  Transmission Date: 20061208
  Serious: Yes (Hospitalization)
  Sender: FDA-Public Use
  Company Number: DSA_28370_2006

PATIENT
  Sex: Male

DRUGS (6)
  1. ENALAPRIL MALEATE [Suspect]
     Dosage: 5 MG Q DAY PO
     Route: 048
  2. SIGMART [Concomitant]
  3. GASMOTIN [Concomitant]
  4. ISOSORBIDE MONONITRATE [Concomitant]
  5. HERBESSER [Concomitant]
  6. THYRADIN [Concomitant]

REACTIONS (3)
  - ARRHYTHMIA [None]
  - HYPOGLYCAEMIA [None]
  - LOSS OF CONSCIOUSNESS [None]
